FAERS Safety Report 10618511 (Version 2)
Quarter: 2015Q4

REPORT INFORMATION
  Report Type: Spontaneous
  Country: US (occurrence: US)
  Receive Date: 20141202
  Receipt Date: 20151124
  Transmission Date: 20160304
  Serious: Yes (Other)
  Sender: FDA-Public Use
  Company Number: US-TEVA-492613USA

PATIENT
  Sex: Female

DRUGS (1)
  1. AZITHROMYCIN [Suspect]
     Active Substance: AZITHROMYCIN ANHYDROUS
     Indication: DIARRHOEA HAEMORRHAGIC
     Dosage: 3000MG OR 1000MG/DAY FOR THREE DAYS

REACTIONS (2)
  - Diarrhoea haemorrhagic [Unknown]
  - Diarrhoea [Unknown]
